FAERS Safety Report 9225935 (Version 1)
Quarter: 2013Q2

REPORT INFORMATION
  Report Type: Spontaneous
  Country: US (occurrence: US)
  Receive Date: 20130411
  Receipt Date: 20130411
  Transmission Date: 20140414
  Serious: No
  Sender: FDA-Public Use
  Company Number: US-ASTELLAS-2012US011920

PATIENT
  Sex: 0

DRUGS (2)
  1. PROTOPIC [Suspect]
     Indication: PYODERMA GANGRENOSUM
     Dosage: UNK
     Route: 061
     Dates: start: 201211
  2. COLLAGENASE SANTYL [Concomitant]
     Indication: PYODERMA GANGRENOSUM
     Dosage: UNK
     Route: 061
     Dates: start: 201211

REACTIONS (1)
  - Drug ineffective for unapproved indication [Unknown]
